FAERS Safety Report 10181884 (Version 1)
Quarter: 2014Q2

REPORT INFORMATION
  Report Type: Spontaneous
  Country: US (occurrence: US)
  Receive Date: 20140519
  Receipt Date: 20140519
  Transmission Date: 20141212
  Serious: No
  Sender: FDA-Public Use
  Company Number: US-ASTRAZENECA-2013SE90592

PATIENT
  Sex: Male

DRUGS (4)
  1. ATACAND [Suspect]
     Indication: BLOOD PRESSURE ABNORMAL
     Route: 048
  2. LISINOPRIL [Suspect]
     Indication: BLOOD PRESSURE ABNORMAL
     Route: 048
  3. TOPROL-XL [Suspect]
     Indication: HEART RATE IRREGULAR
     Dosage: METOPROLOL SUCCINATE - UNKNOWN DAILY
     Route: 048
  4. TOPROL-XL [Suspect]
     Indication: HEART RATE IRREGULAR
     Route: 048

REACTIONS (3)
  - Blood pressure increased [Unknown]
  - Intentional product misuse [Unknown]
  - Drug ineffective [Unknown]
